FAERS Safety Report 15927934 (Version 1)
Quarter: 2019Q1

REPORT INFORMATION
  Report Type: Spontaneous
  Country: CN (occurrence: CN)
  Receive Date: 20190206
  Receipt Date: 20190206
  Transmission Date: 20190417
  Serious: Yes (Other)
  Sender: FDA-Public Use
  Company Number: CN-ASTRAZENECA-2019SE20150

PATIENT
  Sex: Male
  Weight: 58 kg

DRUGS (7)
  1. DALTEPARIN SODIUM [Suspect]
     Active Substance: DALTEPARIN SODIUM
     Indication: COAGULOPATHY
     Route: 058
     Dates: start: 20181217, end: 20181217
  2. IOVERSOL [Concomitant]
     Active Substance: IOVERSOL
     Indication: SCAN WITH CONTRAST
     Route: 013
     Dates: start: 20181217, end: 20181217
  3. TIROFIBAN [Suspect]
     Active Substance: TIROFIBAN
     Indication: COAGULOPATHY
     Route: 041
     Dates: start: 20181217, end: 20181217
  4. TICAGRELOR. [Suspect]
     Active Substance: TICAGRELOR
     Indication: PLATELET DISORDER
     Route: 048
     Dates: start: 20181217, end: 20181217
  5. ASPIRIN. [Suspect]
     Active Substance: ASPIRIN
     Indication: PLATELET DISORDER
     Route: 048
     Dates: start: 20181217, end: 20181217
  6. NITROGLYCERIN. [Concomitant]
     Active Substance: NITROGLYCERIN
     Indication: HYPERTENSION
     Route: 041
     Dates: start: 20181217, end: 20181217
  7. CRESTOR [Concomitant]
     Active Substance: ROSUVASTATIN CALCIUM
     Indication: LIPIDS ABNORMAL
     Route: 048
     Dates: start: 20181217, end: 20181217

REACTIONS (1)
  - Platelet count decreased [Recovering/Resolving]
